FAERS Safety Report 8673305 (Version 3)
Quarter: 2013Q4

REPORT INFORMATION
  Report Type: Report from Study
  Country: US (occurrence: US)
  Receive Date: 20120703
  Receipt Date: 20131031
  Transmission Date: 20140711
  Serious: Yes (Hospitalization, Other)
  Sender: FDA-Public Use
  Company Number: US-009507513-2012SP036389

PATIENT
  Age: 38 Year
  Sex: Female

DRUGS (3)
  1. PEGINTERFERON ALFA-2B [Suspect]
     Indication: HEPATITIS C
     Dosage: UNK
     Dates: start: 20110921
  2. REBETOL [Suspect]
     Dosage: UNK
     Dates: start: 20110921
  3. VICTRELIS [Suspect]
     Indication: HEPATITIS C
     Dosage: UNK
     Route: 065
     Dates: start: 20111103, end: 20120612

REACTIONS (4)
  - Hypoaesthesia [Unknown]
  - Transient ischaemic attack [Unknown]
  - Chest pain [Unknown]
  - Stress [Unknown]
